FAERS Safety Report 19485244 (Version 2)
Quarter: 2021Q3

REPORT INFORMATION
  Report Type: Spontaneous
  Country: IN (occurrence: IN)
  Receive Date: 20210702
  Receipt Date: 20210818
  Transmission Date: 20211014
  Serious: No
  Sender: FDA-Public Use
  Company Number: IN-LUPIN PHARMACEUTICALS INC.-2021-10720

PATIENT
  Age: 24 Year
  Sex: Male

DRUGS (4)
  1. L?CIN FILM C.TABS 500 MG [Suspect]
     Active Substance: LEVOFLOXACIN
     Indication: PYREXIA
  2. L?CIN FILM C.TABS 500 MG [Suspect]
     Active Substance: LEVOFLOXACIN
     Indication: NASOPHARYNGITIS
     Dosage: 1 DOSAGE FORM, QD
     Dates: start: 202106, end: 20210621
  3. COREX?DX [Concomitant]
     Indication: PRODUCT USED FOR UNKNOWN INDICATION
     Dosage: UNK
     Route: 065
  4. MONTINA L [Concomitant]
     Indication: PRODUCT USED FOR UNKNOWN INDICATION
     Dosage: UNK
     Route: 065

REACTIONS (2)
  - Chest discomfort [Recovered/Resolved]
  - Dyspnoea [Recovered/Resolved]

NARRATIVE: CASE EVENT DATE: 202106
